FAERS Safety Report 7772059-5 (Version None)
Quarter: 2011Q3

REPORT INFORMATION
  Report Type: 
  Country: None (occurrence: None)
  Receive Date: 20110922
  Receipt Date: 20110223
  Transmission Date: 20111222
  Serious: No
  Sender: FDA-Public Use
  Company Number: US-ASTRAZENECA-2007UW02082

PATIENT
  Age: 12627 Day
  Sex: Female
  Weight: 68.5 kg

DRUGS (51)
  1. SEROQUEL [Suspect]
     Indication: DEPRESSION
     Route: 048
     Dates: start: 19990401
  2. SEROQUEL [Suspect]
     Dosage: 25 MG-200 MG
     Route: 048
     Dates: start: 20000630
  3. TIGAN [Concomitant]
  4. BENADRYL [Concomitant]
  5. PROVENTIL [Concomitant]
  6. ZYRTEC [Concomitant]
  7. PREVACID [Concomitant]
     Route: 048
  8. NITROSTAT [Concomitant]
  9. COMBIVENT [Concomitant]
     Dosage: TWO PUFFS  EVERY FOUR TO SIX HOURS AS NEEDED
  10. COMBIVENT [Concomitant]
     Dosage: 103 MCG-18 MCG
  11. DICLOFENAC POT [Concomitant]
     Indication: MUSCULOSKELETAL PAIN
     Dosage: 50 MG-100 MG
     Route: 048
  12. LEVOTHYROXINE SODIUM [Concomitant]
     Route: 048
  13. ALLEGRA [Concomitant]
     Route: 048
  14. SEREVENT [Concomitant]
     Dosage: 2 PUFFS TWO TIMES A DAY
  15. SINGULAIR [Concomitant]
     Route: 048
  16. PREVACID [Concomitant]
  17. FUROSEMIDE [Concomitant]
     Route: 048
  18. EPIPEN [Concomitant]
     Dosage: 0.3 MG AUTOINJECTOR
  19. SELENIUM SULF [Concomitant]
     Dosage: 2.5 % SHAMPOO
  20. LIPITOR [Concomitant]
     Dosage: DAILY AT BEDTIME
     Route: 048
  21. LIPITOR [Concomitant]
     Route: 048
  22. LORAZEPAM [Concomitant]
  23. AMBIEN [Concomitant]
     Dosage: 5 MG-10 MG
  24. FLONASE 0.05% [Concomitant]
     Dosage: 2 SPRAYS EACH NOSTRIL DAILY
  25. OXYCODONE HCL AND ACETAMINOPHEN [Concomitant]
     Dosage: 5/325 MG UNKNOWN
  26. PROMETHAZINE [Concomitant]
  27. PREDNISONE [Concomitant]
  28. SULPHAMETHAXAZOLE/TMP [Concomitant]
     Dosage: TAKE ONE TABLET TWO TIMES A DAY
  29. MACROBID [Concomitant]
  30. LORATADINE [Concomitant]
     Route: 048
  31. PROZAC [Concomitant]
     Dosage: 20 MG-40 MG
  32. PROZAC [Concomitant]
     Dosage: 20 MG PULVULE
  33. TEQUIN [Concomitant]
  34. PROMETHAZINE W/ CODEINE [Concomitant]
  35. XOPENEX [Concomitant]
     Dosage: TWO TIME TO THREE TIMES A DAY
  36. HUMIBID LA [Concomitant]
  37. SKELAXIN [Concomitant]
     Indication: MUSCLE TIGHTNESS
     Dosage: TAKE 1-2 TABLETS 4 TIMES A DAY
  38. NEXIUM [Concomitant]
     Route: 048
  39. METROGEL [Concomitant]
     Route: 067
  40. DOXIDAN [Concomitant]
  41. SYNAREL [Concomitant]
     Dosage: 2MG/ML
  42. NEXIUM [Concomitant]
     Route: 048
  43. METFORMIN HCL [Concomitant]
     Route: 048
  44. ENABLEX [Concomitant]
     Route: 048
  45. ASTELIN [Concomitant]
     Dosage: 137 MCG, 2 SPRAYS EACH NOSTRIL TWO TIMES A DAY
  46. SONATA [Concomitant]
  47. RIOPAN PLUS [Concomitant]
  48. TYLENOL-500 [Concomitant]
     Dosage: 325 MG-500 MG
  49. LOVENOX [Concomitant]
  50. COUMADIN [Concomitant]
     Dosage: 0.5 MG -11/2 MG
     Route: 048
  51. DYAZIDE [Concomitant]
     Dosage: DAILY
     Route: 048

REACTIONS (6)
  - GLUCOSE TOLERANCE IMPAIRED [None]
  - TYPE 2 DIABETES MELLITUS [None]
  - INSOMNIA [None]
  - HYPERGLYCAEMIA [None]
  - SLEEP DISORDER [None]
  - VISION BLURRED [None]
